FAERS Safety Report 19168136 (Version 4)
Quarter: 2021Q2

REPORT INFORMATION
  Report Type: Other
  Country: CA (occurrence: CA)
  Receive Date: 20210422
  Receipt Date: 20210602
  Transmission Date: 20210717
  Serious: Yes (Other)
  Sender: FDA-Public Use
  Company Number: CA-ROCHE-2273623

PATIENT
  Sex: Male

DRUGS (6)
  1. CELEBREX [Concomitant]
     Active Substance: CELECOXIB
  2. ASPIRIN. [Concomitant]
     Active Substance: ASPIRIN
  3. OCREVUS [Suspect]
     Active Substance: OCRELIZUMAB
     Indication: RELAPSING-REMITTING MULTIPLE SCLEROSIS
     Dosage: 300 MG AT DAY 0 AND 14, THEN 600 MG EVERY 6 MONTH
     Route: 042
     Dates: start: 20180830
  4. LYRICA [Concomitant]
     Active Substance: PREGABALIN
  5. HYDROMORPHONE [Concomitant]
     Active Substance: HYDROMORPHONE
  6. TYLENOL [Concomitant]
     Active Substance: ACETAMINOPHEN

REACTIONS (8)
  - Herpes zoster [Recovering/Resolving]
  - Pruritus [Recovered/Resolved]
  - Oral herpes [Not Recovered/Not Resolved]
  - Blister [Recovering/Resolving]
  - Multiple sclerosis relapse [Unknown]
  - Fatigue [Recovered/Resolved]
  - Multiple sclerosis [Recovered/Resolved]
  - General physical health deterioration [Unknown]
